FAERS Safety Report 19746419 (Version 8)
Quarter: 2025Q3

REPORT INFORMATION
  Report Type: Report from Study
  Country: BR (occurrence: BR)
  Receive Date: 20210825
  Receipt Date: 20250715
  Transmission Date: 20251020
  Serious: Yes (Hospitalization, Disabling, Other)
  Sender: TAKEDA
  Company Number: BR-TAKEDA-2021TUS052827

PATIENT
  Sex: Male

DRUGS (5)
  1. IDURSULFASE [Suspect]
     Active Substance: IDURSULFASE
     Indication: Mucopolysaccharidosis II
  2. IDURSULFASE [Suspect]
     Active Substance: IDURSULFASE
     Dosage: UNK UNK, 1/WEEK
     Dates: start: 20150101
  3. IDURSULFASE [Suspect]
     Active Substance: IDURSULFASE
     Dosage: UNK UNK, 1/WEEK
  4. IDURSULFASE [Suspect]
     Active Substance: IDURSULFASE
     Dosage: UNK UNK, 1/WEEK
  5. SODIUM CHLORIDE [Suspect]
     Active Substance: SODIUM CHLORIDE
     Indication: Product used for unknown indication

REACTIONS (33)
  - Deafness [Unknown]
  - Arthralgia [Not Recovered/Not Resolved]
  - Umbilical hernia [Unknown]
  - Hypokinesia [Not Recovered/Not Resolved]
  - Hernia [Recovered/Resolved]
  - Bone disorder [Unknown]
  - Short stature [Unknown]
  - Dysarthria [Unknown]
  - Cardiac disorder [Unknown]
  - Pain [Unknown]
  - Pain in extremity [Unknown]
  - Multiple allergies [Unknown]
  - Rash maculo-papular [Unknown]
  - Burning sensation [Not Recovered/Not Resolved]
  - Malaise [Unknown]
  - Discomfort [Unknown]
  - Tension headache [Unknown]
  - Inappropriate schedule of product administration [Unknown]
  - Product prescribing error [Unknown]
  - Dizziness postural [Unknown]
  - Dyspnoea [Unknown]
  - Fatigue [Unknown]
  - Auditory disorder [Unknown]
  - Intervertebral disc degeneration [Unknown]
  - Asthma [Unknown]
  - Dermatitis contact [Unknown]
  - Spinal deformity [Unknown]
  - Spinal pain [Unknown]
  - Fear [Unknown]
  - Shoulder deformity [Unknown]
  - Loss of personal independence in daily activities [Unknown]
  - Ankle deformity [Unknown]
  - Dizziness [Unknown]
